FAERS Safety Report 4825183-0 (Version None)
Quarter: 2005Q4

REPORT INFORMATION
  Report Type: 
  Country: None (occurrence: None)
  Receive Date: 20051109
  Receipt Date: 20051027
  Transmission Date: 20060501
  Serious: Yes (Death, Life-Threatening, Hospitalization, Other)
  Sender: FDA-Public Use
  Company Number: 200513734GDS

PATIENT
  Age: 55 Year
  Sex: Male
  Weight: 65 kg

DRUGS (7)
  1. CIPROBAY INJECTABLE (CIPROFLOXACIN HYDROCHLORIDE) [Suspect]
     Indication: PYREXIA
     Dosage: 400 MG, BID, INTRAVENOUS
     Route: 042
     Dates: start: 20051018, end: 20051022
  2. SCH 56592 (POSACONAZOLE) ORAL SUSPENSION [Concomitant]
  3. URSO FALK [Concomitant]
  4. TOBRAMYCIN INJECTABLE [Concomitant]
  5. TACROLIMUS [Concomitant]
  6. AMBISOME [Concomitant]
  7. OMEPRAZOLE [Concomitant]

REACTIONS (9)
  - ANURIA [None]
  - ASPIRATION [None]
  - BACTERIAL SEPSIS [None]
  - CHOLESTASIS [None]
  - CONDITION AGGRAVATED [None]
  - CONVULSION [None]
  - MULTI-ORGAN FAILURE [None]
  - RENAL FAILURE ACUTE [None]
  - SHOCK [None]
